FAERS Safety Report 19479272 (Version 2)
Quarter: 2021Q4

REPORT INFORMATION
  Report Type: Spontaneous
  Country: US (occurrence: US)
  Receive Date: 20210630
  Receipt Date: 20211115
  Transmission Date: 20220303
  Serious: Yes (Life-Threatening, Hospitalization, Other)
  Sender: FDA-Public Use
  Company Number: US-PFIZER INC-2021259228

PATIENT
  Age: 23 Month
  Sex: Female

DRUGS (1)
  1. GEMTUZUMAB OZOGAMICIN [Suspect]
     Active Substance: GEMTUZUMAB OZOGAMICIN
     Indication: Acute myeloid leukaemia
     Dosage: 3 MG/M2, CYCLIC (ON DAYS 1, 4, 7, 15, 18, AND 21; TOTAL 18MG/M2)

REACTIONS (4)
  - Left ventricular dysfunction [Recovering/Resolving]
  - Pallor [Unknown]
  - Fatigue [Unknown]
  - Cardiotoxicity [Unknown]
